FAERS Safety Report 11148945 (Version 1)
Quarter: 2015Q2

REPORT INFORMATION
  Report Type: Spontaneous
  Country: US (occurrence: US)
  Receive Date: 20150529
  Receipt Date: 20150529
  Transmission Date: 20150821
  Serious: Yes (Other)
  Sender: FDA-Public Use
  Company Number: US-PFIZER INC-2015180250

PATIENT
  Age: 9 Year
  Sex: Male

DRUGS (1)
  1. ZOLOFT [Suspect]
     Active Substance: SERTRALINE HYDROCHLORIDE
     Dosage: 25 MG, UNK

REACTIONS (4)
  - Somnolence [Recovered/Resolved]
  - Diplegia [Unknown]
  - Headache [Unknown]
  - Vision blurred [Unknown]

NARRATIVE: CASE EVENT DATE: 201408
